FAERS Safety Report 5177223-X (Version None)
Quarter: 2006Q4

REPORT INFORMATION
  Report Type: 
  Country: None (occurrence: None)
  Receive Date: 20061218
  Receipt Date: 20061204
  Transmission Date: 20070319
  Serious: Yes (Hospitalization)
  Sender: FDA-Public Use
  Company Number: FI-ELI_LILLY_AND_COMPANY-FI200612000569

PATIENT
  Age: 65 Year
  Sex: Female

DRUGS (23)
  1. CYMBALTA [Suspect]
     Indication: DEPRESSION
     Dosage: 60 MG, DAILY (1/D)
     Route: 048
     Dates: start: 20060814, end: 20061009
  2. TENOX [Concomitant]
     Dosage: 10 MG, DAILY (1/D)
     Route: 048
     Dates: start: 20061024
  3. SEPRAM [Concomitant]
     Dosage: 20 MG, DAILY (1/D)
     Route: 048
     Dates: end: 20060814
  4. SEPRAM [Concomitant]
     Dates: start: 20061006
  5. RISPERDAL                               /SWE/ [Concomitant]
     Dosage: 0.5 MG, 2/D
     Route: 048
     Dates: start: 20061006
  6. PREGABALIN [Concomitant]
     Dosage: 150 MG, 2/D
     Route: 048
     Dates: start: 20060828
  7. OXYCONTIN [Concomitant]
     Dosage: 10 MG, OTHER
     Route: 048
     Dates: start: 20060823
  8. SIFROL                                  /GFR/ [Concomitant]
     Dosage: 0.18 MG, DAILY (1/D)
     Route: 048
     Dates: start: 20060822
  9. VISCOTEARS [Concomitant]
     Dosage: 1 GTT, 4/D
     Route: 047
     Dates: start: 20060811
  10. RIVATRIL [Concomitant]
     Dosage: 2 MG, DAILY (1/D)
     Route: 048
     Dates: start: 20060804
  11. RIVATRIL [Concomitant]
     Dosage: UNK, UNKNOWN
     Route: 048
     Dates: start: 20050324
  12. MOVICOL [Concomitant]
     Dosage: UNK UNK, 2/D
     Route: 048
     Dates: start: 20060509
  13. LANSOPRAZOLE [Concomitant]
     Dosage: 30 MG, DAILY (1/D)
     Route: 048
     Dates: start: 20050922
  14. OBSIDAN [Concomitant]
     Dosage: UNK UNK, 2/D
     Route: 048
     Dates: start: 20050622
  15. PARA-TABS [Concomitant]
     Dosage: 1 G, 3/D
     Route: 048
     Dates: start: 20050622
  16. OFTAN-A-PANT [Concomitant]
     Indication: EYE DISORDER
     Dosage: UNK UNK, 2/D
     Route: 047
     Dates: start: 20050415
  17. PREDNISOLONE [Concomitant]
     Dosage: 5 MG, 2/D
     Route: 048
     Dates: start: 20050415
  18. REUMACON [Concomitant]
     Dosage: 50 MG, 2/D
     Route: 048
     Dates: start: 20040120
  19. CALCICHEW [Concomitant]
     Dosage: UNK UNK, 2/D
     Route: 048
     Dates: start: 20040119
  20. PULMICORT [Concomitant]
     Dates: start: 20060811
  21. OXYNORM [Concomitant]
     Dosage: 5 MG, UNK
     Route: 048
     Dates: start: 20050324
  22. PRED FORTE [Concomitant]
     Dosage: 1 GTT, OTHER
     Route: 047
     Dates: start: 20050324
  23. ULTRACORTENOL [Concomitant]
     Dosage: 1 GTT, AS NEEDED
     Route: 047
     Dates: start: 20060811

REACTIONS (7)
  - AGITATION [None]
  - BLOOD POTASSIUM DECREASED [None]
  - CONFUSIONAL STATE [None]
  - DELUSION [None]
  - HYPERHIDROSIS [None]
  - PSYCHOSEXUAL DISORDER [None]
  - URINARY TRACT INFECTION [None]
